FAERS Safety Report 9832768 (Version 1)
Quarter: 2014Q1

REPORT INFORMATION
  Report Type: Spontaneous
  Country: US (occurrence: US)
  Receive Date: 20140121
  Receipt Date: 20140121
  Transmission Date: 20141002
  Serious: Yes (Life-Threatening, Hospitalization)
  Sender: FDA-Public Use
  Company Number: US-GLAXOSMITHKLINE-A1056926A

PATIENT
  Sex: Male

DRUGS (4)
  1. CARVEDILOL [Suspect]
     Indication: HYPERTENSION
     Dosage: 6.25MG TWICE PER DAY
     Route: 048
     Dates: start: 20140108, end: 20140110
  2. LISINOPRIL [Concomitant]
  3. HYDRALAZINE [Concomitant]
  4. LASIX [Concomitant]

REACTIONS (1)
  - Platelet count decreased [Recovering/Resolving]
